FAERS Safety Report 21130002 (Version 4)
Quarter: 2022Q3

REPORT INFORMATION
  Report Type: Spontaneous
  Country: US (occurrence: US)
  Receive Date: 20220726
  Receipt Date: 20220921
  Transmission Date: 20221027
  Serious: Yes (Other)
  Sender: FDA-Public Use
  Company Number: US-ENDO PHARMACEUTICALS INC-2022-004394

PATIENT
  Sex: Male

DRUGS (8)
  1. EDEX [Suspect]
     Active Substance: ALPROSTADIL
     Indication: Erectile dysfunction
     Dosage: 20 ?G, UNKNOWN
     Route: 065
  2. EDEX [Suspect]
     Active Substance: ALPROSTADIL
     Indication: Erectile dysfunction
     Dosage: 20 ?G, UNKNOWN
     Route: 065
  3. EDEX [Suspect]
     Active Substance: ALPROSTADIL
     Indication: Erectile dysfunction
     Dosage: 20 ?G, UNKNOWN
     Route: 065
  4. EDEX [Suspect]
     Active Substance: ALPROSTADIL
     Indication: Erectile dysfunction
     Dosage: 20 ?G, UNKNOWN
     Route: 065
  5. EDEX [Suspect]
     Active Substance: ALPROSTADIL
     Dosage: 40 ?G, UNKNOWN
     Route: 065
     Dates: start: 20220716
  6. EDEX [Suspect]
     Active Substance: ALPROSTADIL
     Dosage: 40 ?G, UNKNOWN
     Route: 065
     Dates: start: 20220716
  7. EDEX [Suspect]
     Active Substance: ALPROSTADIL
     Dosage: 40 ?G, UNKNOWN
     Route: 065
     Dates: start: 20220716
  8. EDEX [Suspect]
     Active Substance: ALPROSTADIL
     Dosage: 40 ?G, UNKNOWN
     Route: 065
     Dates: start: 20220716

REACTIONS (2)
  - Spinal operation [Recovered/Resolved]
  - Device issue [None]

NARRATIVE: CASE EVENT DATE: 20220101
